FAERS Safety Report 4487879-2 (Version None)
Quarter: 2004Q4

REPORT INFORMATION
  Report Type: 
  Country: None (occurrence: None)
  Receive Date: 20041026
  Receipt Date: 20041007
  Transmission Date: 20050328
  Serious: Yes (Other)
  Sender: FDA-Public Use
  Company Number: USA040671281

PATIENT
  Age: 59 Year
  Sex: Female
  Weight: 50 kg

DRUGS (4)
  1. ZYPREXA [Suspect]
     Indication: SCHIZOAFFECTIVE DISORDER
     Dosage: 15 MG AT BEDTIME
     Dates: start: 20010101
  2. TRAZODONE [Concomitant]
  3. CELEXA [Concomitant]
  4. MELLARIL [Concomitant]

REACTIONS (1)
  - NO ADVERSE EFFECT [None]
